FAERS Safety Report 8809532 (Version 2)
Quarter: 2014Q2

REPORT INFORMATION
  Report Type: Spontaneous
  Country: FR (occurrence: FR)
  Receive Date: 20120926
  Receipt Date: 20131017
  Transmission Date: 20141212
  Serious: Yes (Other)
  Sender: FDA-Public Use
  Company Number: FR-PFIZER INC-2012233633

PATIENT
  Age: 42 Year
  Sex: 0

DRUGS (2)
  1. SOLU-MEDROL [Suspect]
     Dosage: 500 MG, FOR 3 DAYS IN APR, MAY AND JUNE
     Route: 040
  2. OMEPRAZOLE [Concomitant]

REACTIONS (1)
  - Hepatocellular injury [Unknown]
